FAERS Safety Report 5808151-1 (Version None)
Quarter: 2008Q3

REPORT INFORMATION
  Report Type: 
  Country: None (occurrence: None)
  Receive Date: 20080708
  Receipt Date: 20080624
  Transmission Date: 20090109
  Serious: Yes (Hospitalization)
  Sender: FDA-Public Use
  Company Number: 2008-179840-NL

PATIENT
  Age: 42 Year
  Sex: Male

DRUGS (7)
  1. MIRTAZAPINE [Suspect]
     Dosage: 15 MG, ORAL
     Route: 048
     Dates: start: 20070501
  2. DIVALPROEX SODIUM [Suspect]
     Dosage: 500 MG  ORAL
     Route: 048
  3. TERBUTALINE SULFATE [Concomitant]
  4. TRAVOPROST [Concomitant]
  5. DORZOLAMIDE W/TIMOLOL [Concomitant]
  6. ALBUTEROL [Concomitant]
  7. PRAZEPAM [Concomitant]

REACTIONS (1)
  - HEPATITIS FULMINANT [None]
